FAERS Safety Report 19976909 (Version 2)
Quarter: 2021Q4

REPORT INFORMATION
  Report Type: Report from Study
  Country: US (occurrence: US)
  Receive Date: 20211020
  Receipt Date: 20211124
  Transmission Date: 20220303
  Serious: Yes (Other)
  Sender: FDA-Public Use
  Company Number: US-GILEAD-2021-0546957

PATIENT
  Age: 9 Year
  Sex: Female
  Weight: 25 kg

DRUGS (1)
  1. AZTREONAM LYSINE [Suspect]
     Active Substance: AZTREONAM LYSINE
     Indication: Pseudomonas infection
     Dosage: 75 MG, BID, 28 DAYS ON, AND 28 DAYS OFF
     Route: 055

REACTIONS (4)
  - Dependence on respirator [Not Recovered/Not Resolved]
  - Urinary tract infection [Not Recovered/Not Resolved]
  - Intentional misuse of drug delivery system [Not Recovered/Not Resolved]
  - Off label use [Unknown]
